FAERS Safety Report 6172999-7 (Version None)
Quarter: 2009Q2

REPORT INFORMATION
  Report Type: 
  Country: None (occurrence: None)
  Receive Date: 20090430
  Receipt Date: 20090417
  Transmission Date: 20091009
  Serious: Yes (Hospitalization)
  Sender: FDA-Public Use
  Company Number: PL-BAYER-200919419GPV

PATIENT
  Age: 25 Year
  Sex: Female
  Weight: 74 kg

DRUGS (1)
  1. ALEVE [Suspect]
     Indication: DYSMENORRHOEA
     Dosage: UNIT DOSE: 1 DF
     Route: 048
     Dates: start: 20090402, end: 20090402

REACTIONS (4)
  - ANAPHYLACTIC REACTION [None]
  - LIP OEDEMA [None]
  - RASH MACULO-PAPULAR [None]
  - TONGUE OEDEMA [None]
